FAERS Safety Report 5258640-6 (Version None)
Quarter: 2007Q1

REPORT INFORMATION
  Report Type: 
  Country: None (occurrence: None)
  Receive Date: 20070308
  Receipt Date: 20070222
  Transmission Date: 20070707
  Serious: Yes (Death, Hospitalization)
  Sender: FDA-Public Use
  Company Number: SE-ROCHE-483824

PATIENT
  Age: 64 Year
  Sex: Female

DRUGS (7)
  1. CYMEVENE [Suspect]
     Dosage: FORM REPORTED AS POWDER FOR SOLUTION FOR INFUSION.
     Route: 042
     Dates: start: 20000820, end: 20000901
  2. SANDIMMUNE [Concomitant]
  3. MERONEM [Concomitant]
  4. PRECORTALON [Concomitant]
     Dosage: DRUG REPORTED AS PRECORTALON AQUOSUM.
  5. VANCOMYCIN HCL [Concomitant]
  6. AMBISOME [Concomitant]
  7. URSO FALK [Concomitant]

REACTIONS (3)
  - FUNGAL SEPSIS [None]
  - HYPOTENSION [None]
  - RENAL FAILURE [None]
